FAERS Safety Report 5519954-5 (Version None)
Quarter: 2007Q4

REPORT INFORMATION
  Report Type: 
  Country: None (occurrence: None)
  Receive Date: 20071116
  Receipt Date: 20071108
  Transmission Date: 20080405
  Serious: Yes (Other)
  Sender: FDA-Public Use
  Company Number: CA-ASTRAZENECA-2007UW26161

PATIENT

DRUGS (12)
  1. XYLOCAINE [Suspect]
     Route: 047
  2. EPINEPHRINE [Suspect]
  3. BACTIGRAS [Suspect]
     Route: 047
  4. BALANCED SALT SOLUTION [Suspect]
  5. FLURBIPROFEN [Suspect]
     Route: 047
  6. PHENYLEPHRINE HYDROCHLORIDE [Suspect]
     Route: 047
  7. PILOCARPINE [Suspect]
     Route: 047
  8. PREDNISOLONE [Suspect]
     Route: 047
  9. TETRACAINE [Suspect]
     Route: 047
  10. TROPICAMIDE [Suspect]
     Route: 047
  11. VANCOMYCIN [Suspect]
     Route: 047
  12. ZYMAR [Suspect]
     Route: 047

REACTIONS (2)
  - EYE DISORDER [None]
  - INFLAMMATION [None]
